FAERS Safety Report 16526926 (Version 9)
Quarter: 2022Q2

REPORT INFORMATION
  Report Type: Report from Study
  Country: US (occurrence: US)
  Receive Date: 20190703
  Receipt Date: 20220503
  Transmission Date: 20220721
  Serious: Yes (Life-Threatening, Other)
  Sender: FDA-Public Use
  Company Number: PHEH2019US027513

PATIENT
  Sex: Female

DRUGS (1)
  1. COSENTYX [Suspect]
     Active Substance: SECUKINUMAB
     Indication: Psoriasis
     Dosage: UNK
     Route: 065
     Dates: start: 201803

REACTIONS (6)
  - Arthritis [Unknown]
  - Psoriasis [Unknown]
  - Fracture [Unknown]
  - Gait disturbance [Unknown]
  - Fall [Unknown]
  - COVID-19 [Recovered/Resolved]
